FAERS Safety Report 8148648 (Version 2)
Quarter: 2013Q1

REPORT INFORMATION
  Report Type: Spontaneous
  Country: US (occurrence: US)
  Receive Date: 20110922
  Receipt Date: 20130214
  Transmission Date: 20140127
  Serious: Yes (Other)
  Sender: FDA-Public Use
  Company Number: US-ASTRAZENECA-2011SE12554

PATIENT
  Sex: Male

DRUGS (16)
  1. SEROQUEL [Suspect]
     Route: 048
  2. SEROQUEL [Suspect]
     Dosage: 25 TO 100 MG
     Route: 048
     Dates: start: 2005
  3. PREDNISONE [Concomitant]
  4. ALBUTEROL [Concomitant]
  5. METHYLPHENIDATE [Concomitant]
  6. PERPHENAZINE [Concomitant]
  7. CLONAZEPAM [Concomitant]
  8. ACETAMINOPHEN [Concomitant]
  9. MUCINEX [Concomitant]
  10. CLARITIN [Concomitant]
  11. PROTONIX [Concomitant]
  12. SINGULAIR [Concomitant]
  13. LITHIUM CARBPNATE [Concomitant]
  14. TRAZODONE [Concomitant]
  15. FLUOXETINE [Concomitant]
  16. CHANTIX [Concomitant]

REACTIONS (4)
  - Pancreatitis [Unknown]
  - Diabetic coma [Unknown]
  - Type 2 diabetes mellitus [Unknown]
  - Hyperglycaemia [Unknown]
